FAERS Safety Report 7248728-2 (Version None)
Quarter: 2011Q1

REPORT INFORMATION
  Report Type: 
  Country: None (occurrence: None)
  Receive Date: 20110121
  Receipt Date: 20110121
  Transmission Date: 20110831
  Serious: No
  Sender: FDA-Public Use
  Company Number: None

PATIENT
  Sex: Female
  Weight: 58.9676 kg

DRUGS (1)
  1. DARVON [Suspect]
     Indication: PAIN
     Dosage: 1 TABLET 1 X DAY WITH OCCASSIONAL DAYS W/ 2-3 TABLETS DAILY
     Dates: start: 20060901, end: 20101101

REACTIONS (2)
  - DIZZINESS [None]
  - PALPITATIONS [None]
